FAERS Safety Report 5134608-5 (Version None)
Quarter: 2006Q4

REPORT INFORMATION
  Report Type: 
  Country: None (occurrence: None)
  Receive Date: 20061025
  Receipt Date: 20061020
  Transmission Date: 20070319
  Serious: Yes (Life-Threatening, Hospitalization, Other)
  Sender: FDA-Public Use
  Company Number: US-GLAXOSMITHKLINE-A0624400A

PATIENT
  Age: 50 Year
  Sex: Female

DRUGS (4)
  1. VALTREX [Suspect]
     Indication: ANTIVIRAL PROPHYLAXIS
     Dosage: 500MG VARIABLE DOSE
     Route: 048
     Dates: end: 20061016
  2. PREDNISONE TAB [Suspect]
     Indication: LEUKOCYTOCLASTIC VASCULITIS
     Route: 048
  3. HORMONE REPLACEMENT [Concomitant]
  4. LIPITOR [Concomitant]

REACTIONS (14)
  - ABDOMINAL PAIN [None]
  - DEHYDRATION [None]
  - DYSPEPSIA [None]
  - INFLAMMATION [None]
  - INFLUENZA LIKE ILLNESS [None]
  - LEUKOCYTOCLASTIC VASCULITIS [None]
  - LIPASE INCREASED [None]
  - LIVER DISORDER [None]
  - NAUSEA [None]
  - NEPHROLITHIASIS [None]
  - OCULAR HYPERAEMIA [None]
  - PANCREATIC DISORDER [None]
  - PHARYNGEAL OEDEMA [None]
  - RASH [None]
